FAERS Safety Report 16396719 (Version 1)
Quarter: 2019Q2

REPORT INFORMATION
  Report Type: Report from Study
  Country: NO (occurrence: NO)
  Receive Date: 20190606
  Receipt Date: 20190606
  Transmission Date: 20190711
  Serious: Yes (Hospitalization)
  Sender: FDA-Public Use
  Company Number: NO-ROCHE-2287717

PATIENT
  Age: 63 Year
  Sex: Male
  Weight: 67 kg

DRUGS (12)
  1. SANDOSTATIN LAR DEPOT [Concomitant]
     Active Substance: OCTREOTIDE ACETATE
     Indication: DIARRHOEA
     Route: 030
     Dates: start: 20190312, end: 20190312
  2. COBIMETINIB. [Suspect]
     Active Substance: COBIMETINIB
     Indication: PLASMA CELL MYELOMA
     Dosage: MOST RECENT DOSE ON 17/MAR/2019 (40 MG)
     Route: 048
     Dates: start: 20190304
  3. LOPERAMID [Concomitant]
     Active Substance: LOPERAMIDE
     Indication: DIARRHOEA
     Route: 048
     Dates: start: 20190304
  4. ATEZOLIZUMAB. [Suspect]
     Active Substance: ATEZOLIZUMAB
     Indication: PLASMA CELL MYELOMA
     Dosage: MOST RECENT DOSE ON 04/MAR/2019
     Route: 042
  5. VENETOCLAX. [Suspect]
     Active Substance: VENETOCLAX
     Indication: PLASMA CELL MYELOMA
     Dosage: MOST RECENT DOSE ON 17/MAR/2019 (800 MG)
     Route: 048
     Dates: start: 20190304
  6. NEURONTIN [Concomitant]
     Active Substance: GABAPENTIN
     Indication: NEURALGIA
     Route: 048
     Dates: start: 20120216
  7. BACTRIM [Concomitant]
     Active Substance: SULFAMETHOXAZOLE\TRIMETHOPRIM
     Indication: INFECTION PROPHYLAXIS
     Route: 048
     Dates: start: 20160721
  8. SANCUSO [Concomitant]
     Active Substance: GRANISETRON
     Indication: NAUSEA
     Dosage: DOSE: 1 OTHER
     Route: 061
     Dates: start: 20190305
  9. OXYCONTIN [Concomitant]
     Active Substance: OXYCODONE HYDROCHLORIDE
     Indication: PAIN
     Route: 048
     Dates: start: 20120201
  10. SODIUM CHLORIDE. [Concomitant]
     Active Substance: SODIUM CHLORIDE
     Indication: DEHYDRATION
     Route: 042
     Dates: start: 20190318, end: 20190318
  11. ZOFRAN [Concomitant]
     Active Substance: ONDANSETRON HYDROCHLORIDE
     Indication: NAUSEA
     Route: 048
     Dates: start: 20190304
  12. DICLOCIL [Concomitant]
     Active Substance: DICLOXACILLIN SODIUM
     Indication: DERMATITIS INFECTED
     Route: 048
     Dates: start: 20190318, end: 20190319

REACTIONS (1)
  - Intestinal ulcer [Recovered/Resolved]

NARRATIVE: CASE EVENT DATE: 20190319
